FAERS Safety Report 19389463 (Version 1)
Quarter: 2021Q2

REPORT INFORMATION
  Report Type: Spontaneous
  Country: US (occurrence: US)
  Receive Date: 20210607
  Receipt Date: 20210607
  Transmission Date: 20210717
  Serious: No
  Sender: FDA-Public Use
  Company Number: None

PATIENT
  Age: 33 Year
  Sex: Female
  Weight: 55.8 kg

DRUGS (6)
  1. AMPHETAMINE?DEXTROAMPHETAMINE [Suspect]
     Active Substance: AMPHETAMINE SULFATE\DEXTROAMPHETAMINE
     Indication: ATTENTION DEFICIT HYPERACTIVITY DISORDER
     Dosage: ?          QUANTITY:1 TABLET(S);?
     Route: 048
     Dates: start: 20210603, end: 20210607
  2. MAGNESIUM [Concomitant]
     Active Substance: MAGNESIUM
  3. IBUPROFEN. [Concomitant]
     Active Substance: IBUPROFEN
  4. WOMENS MULTI?VITAMIN [Concomitant]
  5. POTASSIUM [Concomitant]
     Active Substance: POTASSIUM
  6. CALCIUM+D [Concomitant]
     Active Substance: CALCIUM\VITAMIN D

REACTIONS (8)
  - Drug ineffective [None]
  - Back pain [None]
  - Manufacturing issue [None]
  - Headache [None]
  - Blood pressure increased [None]
  - Nausea [None]
  - Tachycardia [None]
  - Anxiety [None]

NARRATIVE: CASE EVENT DATE: 20210607
